FAERS Safety Report 4649853-2 (Version None)
Quarter: 2005Q2

REPORT INFORMATION
  Report Type: 
  Country: None (occurrence: None)
  Receive Date: 20050428
  Receipt Date: 20050415
  Transmission Date: 20051028
  Serious: Yes (Hospitalization)
  Sender: FDA-Public Use
  Company Number: 2005061508

PATIENT
  Age: 45 Year
  Sex: Male

DRUGS (1)
  1. BEXTRA [Suspect]
     Indication: ILL-DEFINED DISORDER
     Dosage: (40 MG), ORAL
     Route: 048
     Dates: start: 20040701

REACTIONS (4)
  - CARDIAC DISORDER [None]
  - PNEUMONIA [None]
  - PRURITUS GENERALISED [None]
  - PULMONARY EMBOLISM [None]
